FAERS Safety Report 5171687-3 (Version None)
Quarter: 2006Q4

REPORT INFORMATION
  Report Type: 
  Country: None (occurrence: None)
  Receive Date: 20061213
  Receipt Date: 20061127
  Transmission Date: 20070319
  Serious: Yes (Hospitalization)
  Sender: FDA-Public Use
  Company Number: JP-SANOFI-SYNTHELABO-A01200610213

PATIENT
  Age: 73 Year
  Sex: Female

DRUGS (6)
  1. LASIX [Suspect]
     Indication: DRUG USE FOR UNKNOWN INDICATION
     Dosage: UNK
     Route: 042
     Dates: start: 20061007, end: 20061108
  2. MILRILA [Suspect]
     Indication: CARDIAC FAILURE ACUTE
     Route: 041
     Dates: start: 20061007, end: 20061030
  3. NITROGLYCERIN [Concomitant]
     Indication: DRUG USE FOR UNKNOWN INDICATION
     Route: 041
     Dates: start: 20061024, end: 20061108
  4. INOVAN [Concomitant]
     Indication: DRUG USE FOR UNKNOWN INDICATION
     Route: 041
     Dates: start: 20061008, end: 20061023
  5. PANSPORIN [Concomitant]
     Indication: DRUG USE FOR UNKNOWN INDICATION
     Route: 042
     Dates: start: 20061007, end: 20061023
  6. HANP [Concomitant]
     Indication: DRUG USE FOR UNKNOWN INDICATION
     Route: 041
     Dates: start: 20061007, end: 20061024

REACTIONS (3)
  - HAEMODIALYSIS [None]
  - HAEMODYNAMIC INSTABILITY [None]
  - RENAL IMPAIRMENT [None]
